FAERS Safety Report 10414563 (Version 2)
Quarter: 2014Q3

REPORT INFORMATION
  Report Type: Spontaneous
  Country: US (occurrence: US)
  Receive Date: 20140828
  Receipt Date: 20140902
  Transmission Date: 20150326
  Serious: Yes (Hospitalization)
  Sender: FDA-Public Use
  Company Number: US-009507513-1408USA016019

PATIENT
  Age: 57 Year
  Sex: Female

DRUGS (2)
  1. EMEND [Suspect]
     Active Substance: APREPITANT
     Dosage: 150 MG IV
     Route: 042
     Dates: start: 20140813
  2. ANTINEOPLASTIC (UNSPECIFIED) [Suspect]
     Active Substance: UNSPECIFIED INGREDIENT
     Indication: CHEMOTHERAPY
     Dosage: UNK
     Dates: start: 20140813

REACTIONS (10)
  - Clostridium test [Unknown]
  - Dyspnoea [Unknown]
  - Anxiety [Unknown]
  - Vomiting [Recovered/Resolved]
  - Wound secretion [Unknown]
  - Chest discomfort [Unknown]
  - Suture removal [Unknown]
  - Nausea [Recovered/Resolved]
  - Adverse event [Unknown]
  - Diarrhoea [Recovered/Resolved]

NARRATIVE: CASE EVENT DATE: 201408
